FAERS Safety Report 7744738-7 (Version None)
Quarter: 2011Q3

REPORT INFORMATION
  Report Type: 
  Country: None (occurrence: None)
  Receive Date: 20110912
  Receipt Date: 20110902
  Transmission Date: 20111222
  Serious: Yes (Hospitalization)
  Sender: FDA-Public Use
  Company Number: US-US-EMD SERONO, INC.-7081436

PATIENT
  Sex: Female

DRUGS (13)
  1. PAPAYA ENZYME [Concomitant]
  2. COQ10 [Concomitant]
  3. MINERAL TAB [Concomitant]
     Dosage: EXTRA STRENGTH
  4. REBIF [Suspect]
     Indication: PRODUCT USED FOR UNKNOWN INDICATION
     Route: 058
  5. ALPHA LIPOIC [Concomitant]
  6. RED YEAST RICE [Concomitant]
  7. MULTI-VITAMIN [Concomitant]
  8. NEXIUM [Concomitant]
  9. GINKGO BILOBA [Concomitant]
  10. VITAMIN E BAR [Concomitant]
  11. SELENIUM [Concomitant]
  12. VITAMIN D [Concomitant]
  13. SUPER B COMPLEX [Concomitant]

REACTIONS (4)
  - INJECTION SITE ANAESTHESIA [None]
  - INFLUENZA LIKE ILLNESS [None]
  - INJECTION SITE PAIN [None]
  - DIVERTICULITIS [None]
